FAERS Safety Report 9463865 (Version 2)
Quarter: 2013Q3

REPORT INFORMATION
  Report Type: Spontaneous
  Country: BR (occurrence: BR)
  Receive Date: 20130819
  Receipt Date: 20130912
  Transmission Date: 20140515
  Serious: Yes (Other)
  Sender: FDA-Public Use
  Company Number: BR-PFIZER INC-2013238487

PATIENT
  Age: 79 Year
  Sex: Male
  Weight: 80 kg

DRUGS (1)
  1. EFEXOR XR [Suspect]
     Indication: PAIN
     Dosage: 75 MG (ONE ^TABLET^), 1X/DAY
     Route: 048

REACTIONS (2)
  - Spinal disorder [Unknown]
  - Off label use [Not Recovered/Not Resolved]
